FAERS Safety Report 6275684-6 (Version None)
Quarter: 2009Q3

REPORT INFORMATION
  Report Type: 
  Country: None (occurrence: None)
  Receive Date: 20090721
  Receipt Date: 20090713
  Transmission Date: 20100115
  Serious: Yes (Other)
  Sender: FDA-Public Use
  Company Number: GB-ABBOTT-08P-167-0494561-00

PATIENT
  Sex: Female
  Weight: 89 kg

DRUGS (6)
  1. REDUCTIL 15MG [Suspect]
     Indication: WEIGHT CONTROL
     Route: 048
     Dates: start: 20080707, end: 20081007
  2. ALBUTEROL [Concomitant]
     Indication: ASTHMA
     Route: 055
     Dates: start: 20070701
  3. SERETIDE 50 [Concomitant]
     Indication: ASTHMA
     Route: 055
     Dates: start: 20071001
  4. INSULIN [Concomitant]
     Indication: GESTATIONAL DIABETES
  5. GLARGINE [Concomitant]
     Indication: DRUG USE FOR UNKNOWN INDICATION
  6. NOVORAPID [Concomitant]
     Indication: DRUG USE FOR UNKNOWN INDICATION

REACTIONS (3)
  - GESTATIONAL DIABETES [None]
  - GLYCOSURIA [None]
  - PROLONGED LABOUR [None]
